FAERS Safety Report 11839122 (Version 3)
Quarter: 2016Q2

REPORT INFORMATION
  Report Type: Spontaneous
  Country: DE (occurrence: DE)
  Receive Date: 20151216
  Receipt Date: 20160420
  Transmission Date: 20160815
  Serious: Yes (Other)
  Sender: FDA-Public Use
  Company Number: DE-AMGEN-DEUSP2015103968

PATIENT
  Age: 74 Year
  Sex: Female

DRUGS (5)
  1. CALCIUM + D3                       /01483701/ [Concomitant]
     Dosage: UNK
  2. ENBREL [Suspect]
     Active Substance: ETANERCEPT
     Indication: RHEUMATOID ARTHRITIS
     Dosage: 50 MG, EVERY 10 DAYS
     Route: 065
     Dates: start: 20130118, end: 20151111
  3. BISOPROLOL [Concomitant]
     Active Substance: BISOPROLOL
     Dosage: 2.5 MG, UNK
  4. PROLIA [Suspect]
     Active Substance: DENOSUMAB
     Indication: PRODUCT USED FOR UNKNOWN INDICATION
     Dosage: 60 MG, UNK
     Route: 065
     Dates: start: 20140723, end: 20150205
  5. ATARAX [Concomitant]
     Active Substance: HYDROXYZINE\HYDROXYZINE HYDROCHLORIDE
     Dosage: 12.5 MG, UNK
     Dates: start: 20141016

REACTIONS (13)
  - Vomiting [Unknown]
  - Injection site pruritus [Not Recovered/Not Resolved]
  - Generalised erythema [Not Recovered/Not Resolved]
  - Diarrhoea [Unknown]
  - Back pain [Recovered/Resolved]
  - Injection site erythema [Not Recovered/Not Resolved]
  - Pruritus [Not Recovered/Not Resolved]
  - Skin reaction [Not Recovered/Not Resolved]
  - Drug ineffective [Unknown]
  - Spinal fracture [Recovered/Resolved]
  - Acne [Not Recovered/Not Resolved]
  - Sleep disorder due to general medical condition, insomnia type [Not Recovered/Not Resolved]
  - Osteoporotic fracture [Unknown]

NARRATIVE: CASE EVENT DATE: 20130118
